FAERS Safety Report 7686768-X (Version None)
Quarter: 2011Q3

REPORT INFORMATION
  Report Type: 
  Country: None (occurrence: None)
  Receive Date: 20110816
  Receipt Date: 20110808
  Transmission Date: 20111222
  Serious: Yes (Other)
  Sender: FDA-Public Use
  Company Number: GB-TEVA-295870ISR

PATIENT
  Age: 53 Year
  Sex: Female
  Weight: 78 kg

DRUGS (1)
  1. TOPIRAMATE [Suspect]
     Dosage: 50 MILLIGRAM;
     Route: 048
     Dates: start: 20100618

REACTIONS (1)
  - TONGUE DISCOLOURATION [None]
